FAERS Safety Report 16737293 (Version 1)
Quarter: 2019Q3

REPORT INFORMATION
  Report Type: Report from Study
  Country: IR (occurrence: IR)
  Receive Date: 20190823
  Receipt Date: 20190823
  Transmission Date: 20191005
  Serious: Yes (Other)
  Sender: FDA-Public Use
  Company Number: IR-JNJFOC-20190802358

PATIENT
  Sex: Female

DRUGS (3)
  1. DOXORUBICIN HYDROCHLORIDE. [Suspect]
     Active Substance: DOXORUBICIN HYDROCHLORIDE
     Indication: BREAST CANCER
     Dosage: 50 MG / 60 MG PER SQUARE METER OF BODY SURFACE AREA
     Route: 042
  2. DOCETAXEL. [Suspect]
     Active Substance: DOCETAXEL
     Indication: BREAST CANCER
     Dosage: 75MG PER SQUARE METER OF BODY SURFACE AREA EVERY THREE WEEKS
     Route: 042
  3. PACLITAXEL. [Suspect]
     Active Substance: PACLITAXEL
     Indication: BREAST CANCER
     Dosage: 150 MG / 200 MG PER SQUARE METER OF BODY SURFACE AREA, EVERY THREE WEEKS
     Route: 042

REACTIONS (31)
  - Vomiting [Unknown]
  - Blood creatinine increased [Unknown]
  - Hepatic enzyme increased [Unknown]
  - Bone pain [Unknown]
  - Abdominal pain [Unknown]
  - Decreased appetite [Unknown]
  - Haematuria [Unknown]
  - Blood urea increased [Unknown]
  - Asthma [Unknown]
  - Restlessness [Unknown]
  - Leukocytosis [Unknown]
  - Coagulation time prolonged [Unknown]
  - Alopecia [Unknown]
  - Hypersensitivity [Unknown]
  - Cough [Unknown]
  - Leukopenia [Unknown]
  - Thrombocytopenia [Unknown]
  - Dyspepsia [Unknown]
  - Insomnia [Unknown]
  - Constipation [Unknown]
  - Anaemia [Unknown]
  - Chest pain [Unknown]
  - Pyrexia [Unknown]
  - Diarrhoea [Unknown]
  - Oral disorder [Unknown]
  - Vertigo [Unknown]
  - Onychalgia [Unknown]
  - Headache [Unknown]
  - Proteinuria [Unknown]
  - Blister [Unknown]
  - Nausea [Unknown]
